FAERS Safety Report 14276773 (Version 1)
Quarter: 2017Q4

REPORT INFORMATION
  Report Type: Spontaneous
  Country: US (occurrence: US)
  Receive Date: 20171212
  Receipt Date: 20171212
  Transmission Date: 20180321
  Serious: Yes (Hospitalization)
  Sender: FDA-Public Use
  Company Number: US-AUROBINDO-AUR-APL-2017-44223

PATIENT
  Age: 47 Year
  Sex: Female

DRUGS (5)
  1. HYDROXYZINE [Interacting]
     Active Substance: HYDROXYZINE HYDROCHLORIDE
     Indication: PRODUCT USED FOR UNKNOWN INDICATION
     Dosage: 100 MG, 3 TIMES A DAY
     Route: 065
  2. TRAZODONE [Interacting]
     Active Substance: TRAZODONE HYDROCHLORIDE
     Indication: PRODUCT USED FOR UNKNOWN INDICATION
     Dosage: 200 MG, UNK
     Route: 065
  3. GABAPENTIN. [Suspect]
     Active Substance: GABAPENTIN
     Indication: PRODUCT USED FOR UNKNOWN INDICATION
     Dosage: 800 MG, 3 TIMES A DAY
     Route: 065
  4. QUETIAPINE. [Interacting]
     Active Substance: QUETIAPINE
     Indication: PRODUCT USED FOR UNKNOWN INDICATION
     Dosage: 50 MG, 3 TIMES A DAY
     Route: 065
  5. BUPROPION. [Interacting]
     Active Substance: BUPROPION
     Indication: PRODUCT USED FOR UNKNOWN INDICATION
     Dosage: 150 MG, TWO TIMES A DAY
     Route: 065

REACTIONS (14)
  - Somnolence [Recovered/Resolved]
  - Mental status changes [Recovered/Resolved]
  - Dyskinesia [Recovered/Resolved]
  - Anticholinergic syndrome [Recovered/Resolved]
  - Peripheral coldness [Recovered/Resolved]
  - Mucous membrane disorder [Recovered/Resolved]
  - Mydriasis [Recovered/Resolved]
  - Drug interaction [Recovered/Resolved]
  - Hyperreflexia [Recovered/Resolved]
  - Urinary incontinence [Recovered/Resolved]
  - Dysarthria [Recovered/Resolved]
  - Orthostatic hypotension [Recovered/Resolved]
  - Electrocardiogram QT prolonged [Recovered/Resolved]
  - Dystonia [Recovered/Resolved]
